FAERS Safety Report 13920308 (Version 2)
Quarter: 2017Q3

REPORT INFORMATION
  Report Type: Spontaneous
  Country: US (occurrence: US)
  Receive Date: 20170830
  Receipt Date: 20170928
  Transmission Date: 20171127
  Serious: Yes (Other)
  Sender: FDA-Public Use
  Company Number: US-SUN PHARMACEUTICAL INDUSTRIES LTD-2017US-148674

PATIENT
  Age: 18 Year
  Sex: Male

DRUGS (2)
  1. ABSORICA [Suspect]
     Active Substance: ISOTRETINOIN
     Indication: ACNE
     Dosage: 20 MG, QD
     Route: 048
     Dates: start: 20170704, end: 20170730
  2. ABSORICA [Suspect]
     Active Substance: ISOTRETINOIN
     Dosage: 20 MG, BID
     Route: 048
     Dates: start: 20170731, end: 20170812

REACTIONS (8)
  - Inflammation [Recovering/Resolving]
  - Nodule [Not Recovered/Not Resolved]
  - Pruritus [Recovering/Resolving]
  - Drug ineffective [Unknown]
  - Rash pustular [Unknown]
  - Facial pain [Recovering/Resolving]
  - Eyelid oedema [Unknown]
  - Depression [Unknown]

NARRATIVE: CASE EVENT DATE: 20170720
